FAERS Safety Report 9433304 (Version 1)
Quarter: 2013Q3

REPORT INFORMATION
  Report Type: Spontaneous
  Country: FR (occurrence: FR)
  Receive Date: 20130731
  Receipt Date: 20130731
  Transmission Date: 20140515
  Serious: Yes (Hospitalization)
  Sender: FDA-Public Use
  Company Number: FR-ASTRAZENECA-2013SE56239

PATIENT
  Age: 62 Year
  Sex: Male

DRUGS (4)
  1. INEXIUM [Suspect]
     Route: 048
     Dates: start: 20130518, end: 20130521
  2. ADENURIC [Suspect]
     Indication: GOUTY ARTHRITIS
     Route: 048
     Dates: start: 20130322, end: 20130521
  3. COLCHIMAX [Suspect]
     Indication: GOUTY ARTHRITIS
     Dosage: LONG LASTING TREATMENT
     Route: 048
     Dates: end: 20130521
  4. VOLTARENE [Suspect]
     Indication: GOUTY ARTHRITIS
     Dosage: LONG LASTING TREATMENT
     Route: 048
     Dates: end: 20130521

REACTIONS (5)
  - Blood alkaline phosphatase increased [Recovering/Resolving]
  - Lymphopenia [Not Recovered/Not Resolved]
  - Neutropenia [Recovered/Resolved]
  - Transaminases increased [Recovering/Resolving]
  - Leukopenia [Not Recovered/Not Resolved]
